FAERS Safety Report 8582416 (Version 4)
Quarter: 2012Q4

REPORT INFORMATION
  Report Type: Spontaneous
  Country: DE (occurrence: None)
  Receive Date: 20120517
  Receipt Date: 20120827
  Transmission Date: 20130627
  Serious: Yes (Death, Life-Threatening, Hospitalization, Other)
  Sender: FDA-Public Use
  Company Number: 2012MPI00197

PATIENT
  Age: 35 Year
  Sex: Female

DRUGS (3)
  1. BRENTUXIMAB VEDOTIN [Suspect]
     Indication: HODGKIN^S DISEASE
     Dosage: 1.8 MG/KG, INTRAVENOUS
     Route: 042
     Dates: start: 201102, end: 201109
  2. VALTREX [Concomitant]
  3. COTRIM [Concomitant]

REACTIONS (7)
  - PNEUMONIA [None]
  - BACTERIAL SEPSIS [None]
  - ACUTE RESPIRATORY DISTRESS SYNDROME [None]
  - MULTI-ORGAN FAILURE [None]
  - STEM CELL TRANSPLANT [None]
  - MEDIASTINAL DISORDER [None]
  - LYMPHADENOPATHY [None]
